FAERS Safety Report 11929636 (Version 3)
Quarter: 2016Q1

REPORT INFORMATION
  Report Type: Report from Study
  Country: US (occurrence: US)
  Receive Date: 20160120
  Receipt Date: 20160216
  Transmission Date: 20160526
  Serious: No
  Sender: FDA-Public Use
  Company Number: US-AMGEN-USASP2016004107

PATIENT
  Age: 49 Year
  Sex: Female

DRUGS (1)
  1. ENBREL [Suspect]
     Active Substance: ETANERCEPT
     Indication: RHEUMATOID ARTHRITIS
     Dosage: 50 MG, QWK
     Route: 065
     Dates: start: 20150819

REACTIONS (6)
  - Chills [Unknown]
  - Cough [Unknown]
  - Drug dose omission [Unknown]
  - Pyrexia [Unknown]
  - Oropharyngeal pain [Unknown]
  - Device issue [Unknown]

NARRATIVE: CASE EVENT DATE: 201601
